FAERS Safety Report 11694653 (Version 1)
Quarter: 2015Q4

REPORT INFORMATION
  Report Type: Spontaneous
  Country: US (occurrence: US)
  Receive Date: 20151103
  Receipt Date: 20151103
  Transmission Date: 20160304
  Serious: No
  Sender: FDA-Public Use
  Company Number: US-SHIRE-US201513316

PATIENT
  Sex: Female

DRUGS (1)
  1. FOSRENOL [Suspect]
     Active Substance: LANTHANUM CARBONATE
     Indication: HYPERPHOSPHATAEMIA
     Dosage: UNK, UNKNOWN
     Route: 048
     Dates: end: 2015

REACTIONS (2)
  - Drug ineffective [Recovered/Resolved]
  - Blood phosphorus increased [Recovered/Resolved]

NARRATIVE: CASE EVENT DATE: 2015
